FAERS Safety Report 5925253-X (Version None)
Quarter: 2008Q3

REPORT INFORMATION
  Report Type: 
  Country: None (occurrence: None)
  Receive Date: 20080909
  Receipt Date: 20071203
  Transmission Date: 20090109
  Serious: Yes (Hospitalization, Other)
  Sender: FDA-Public Use
  Company Number: 163-20785-07090256

PATIENT
  Age: 60 Year
  Sex: Male

DRUGS (2)
  1. THALOMID [Suspect]
     Indication: MULTIPLE MYELOMA
     Dosage: 50 -100 MG, DAILY, ORAL
     Route: 048
     Dates: start: 20070201, end: 20070602
  2. LOVENOX [Concomitant]

REACTIONS (5)
  - COLITIS [None]
  - CYTOMEGALOVIRUS VIRAEMIA [None]
  - HEPATOCELLULAR INJURY [None]
  - LIVER FUNCTION TEST ABNORMAL [None]
  - THROMBOSIS [None]
